FAERS Safety Report 10559908 (Version 1)
Quarter: 2014Q4

REPORT INFORMATION
  Report Type: Spontaneous
  Country: US (occurrence: None)
  Receive Date: 20141030
  Receipt Date: 20141030
  Transmission Date: 20150529
  Serious: Yes (Disabling, Other)
  Sender: FDA-Public Use
  Company Number: US-H14001-14-01199

PATIENT
  Age: 63 Year
  Sex: Male

DRUGS (3)
  1. HEPARIN [Suspect]
     Active Substance: HEPARIN SODIUM
     Indication: PRODUCT USED FOR UNKNOWN INDICATION
  2. ARGATROBAN (ARGATROBAN) (UNKNOWN) (ARGATROBAN) [Suspect]
     Active Substance: ARGATROBAN
     Indication: PRODUCT USED FOR UNKNOWN INDICATION
     Route: 042
  3. ALTEPLASE (ALTEPLASE) [Concomitant]
     Active Substance: ALTEPLASE

REACTIONS (10)
  - Deep vein thrombosis [None]
  - Thrombosis [None]
  - Blindness [None]
  - Cardiopulmonary failure [None]
  - Pulmonary embolism [None]
  - Epistaxis [None]
  - Superior vena cava syndrome [None]
  - Deafness [None]
  - Chronic kidney disease [None]
  - Heparin-induced thrombocytopenia [None]
